FAERS Safety Report 25734583 (Version 1)
Quarter: 2025Q3

REPORT INFORMATION
  Report Type: Spontaneous
  Country: CA (occurrence: CA)
  Receive Date: 20250828
  Receipt Date: 20250828
  Transmission Date: 20251021
  Serious: Yes (Other)
  Sender: Kenvue
  Company Number: CA-KENVUE-20250809917

PATIENT

DRUGS (10)
  1. ACETAMINOPHEN [Suspect]
     Active Substance: ACETAMINOPHEN
     Indication: Oropharyngeal discomfort
     Dosage: ONCE A DAY
     Route: 045
  2. ACETAMINOPHEN [Suspect]
     Active Substance: ACETAMINOPHEN
     Indication: Nasal discomfort
     Route: 065
  3. ACETAMINOPHEN [Suspect]
     Active Substance: ACETAMINOPHEN
     Indication: Product used for unknown indication
     Route: 065
  4. ACETAMINOPHEN [Suspect]
     Active Substance: ACETAMINOPHEN
     Indication: Product used for unknown indication
     Dosage: 10 DOSAGE FORM, ONCE A DAY
     Route: 045
  5. ACETAMINOPHEN [Suspect]
     Active Substance: ACETAMINOPHEN
     Indication: Drug abuse
     Dosage: ONCE A DAY
     Route: 065
  6. ACETAMINOPHEN [Suspect]
     Active Substance: ACETAMINOPHEN
     Indication: Oropharyngeal discomfort
     Route: 045
  7. ACETAMINOPHEN [Suspect]
     Active Substance: ACETAMINOPHEN
     Indication: Nasal discomfort
     Dosage: ONCE A DAY
     Route: 045
  8. PERCOCET [Suspect]
     Active Substance: ACETAMINOPHEN\OXYCODONE HYDROCHLORIDE
     Indication: Product used for unknown indication
     Route: 065
  9. PERCOCET [Suspect]
     Active Substance: ACETAMINOPHEN\OXYCODONE HYDROCHLORIDE
     Route: 065
  10. ACETAMINOPHEN\OXYCODONE HYDROCHLORIDE [Suspect]
     Active Substance: ACETAMINOPHEN\OXYCODONE HYDROCHLORIDE
     Indication: Product used for unknown indication
     Route: 045

REACTIONS (22)
  - Anosmia [Recovered/Resolved]
  - Drug abuse [Recovered/Resolved]
  - Dysphonia [Recovered/Resolved]
  - Nasal congestion [Recovered/Resolved]
  - Nasal crusting [Recovered/Resolved]
  - Nasal discomfort [Recovered/Resolved]
  - Nasal inflammation [Recovered/Resolved]
  - Nasal necrosis [Recovered/Resolved]
  - Nasal septum perforation [Recovered/Resolved]
  - Odynophagia [Recovered/Resolved]
  - Oropharyngeal discomfort [Recovered/Resolved]
  - Rhinalgia [Recovered/Resolved]
  - Rhinorrhoea [Recovered/Resolved]
  - Sinus pain [Recovered/Resolved]
  - Intentional product use issue [Recovered/Resolved]
  - Nasal septal operation [Unknown]
  - Necrosis [Unknown]
  - Incorrect route of product administration [Unknown]
  - Sinus congestion [Unknown]
  - Throat irritation [Unknown]
  - Vocal cord erythema [Unknown]
  - Vocal cord inflammation [Unknown]
